FAERS Safety Report 25284141 (Version 1)
Quarter: 2025Q2

REPORT INFORMATION
  Report Type: Spontaneous
  Country: IT (occurrence: IT)
  Receive Date: 20250508
  Receipt Date: 20250508
  Transmission Date: 20250716
  Serious: Yes (Other)
  Sender: AMGEN
  Company Number: IT-AMGEN-ITASP2025088641

PATIENT

DRUGS (1)
  1. XGEVA [Suspect]
     Active Substance: DENOSUMAB
     Indication: Metastases to bone
     Route: 065

REACTIONS (6)
  - Pathological fracture [Unknown]
  - Spinal cord compression [Unknown]
  - Bone operation [Unknown]
  - Radiotherapy to bone [Unknown]
  - Hypercalcaemia [Unknown]
  - Cancer pain [Unknown]
